FAERS Safety Report 19665716 (Version 1)
Quarter: 2021Q3

REPORT INFORMATION
  Report Type: Spontaneous
  Country: US (occurrence: US)
  Receive Date: 20210805
  Receipt Date: 20210805
  Transmission Date: 20211014
  Serious: Yes (Other)
  Sender: FDA-Public Use
  Company Number: None

PATIENT
  Age: 44 Year
  Sex: Female
  Weight: 63 kg

DRUGS (4)
  1. HUMIRA [Suspect]
     Active Substance: ADALIMUMAB
     Dosage: ?          OTHER FREQUENCY:2 WEEKS;?
     Route: 058
     Dates: start: 20200412, end: 20200426
  2. MULTIVITAMIN [Concomitant]
     Active Substance: VITAMINS
  3. IRON [Concomitant]
     Active Substance: IRON
  4. PROBIOTICS [Concomitant]
     Active Substance: PROBIOTICS NOS

REACTIONS (7)
  - Swelling face [None]
  - Hypoaesthesia [None]
  - Joint swelling [None]
  - Lymphadenopathy [None]
  - Jaw disorder [None]
  - Fall [None]
  - Rash [None]

NARRATIVE: CASE EVENT DATE: 20200501
